FAERS Safety Report 19197174 (Version 1)
Quarter: 2021Q2

REPORT INFORMATION
  Report Type: Spontaneous
  Country: US (occurrence: US)
  Receive Date: 20210429
  Receipt Date: 20210429
  Transmission Date: 20210717
  Serious: Yes (Life-Threatening, Hospitalization, Other)
  Sender: FDA-Public Use
  Company Number: US-PFIZER INC-2021435175

PATIENT
  Sex: Male
  Weight: 132.2 kg

DRUGS (26)
  1. VITAMIN B COMPLEX [Concomitant]
     Active Substance: CYANOCOBALAMIN\DEXPANTHENOL\NIACINAMIDE\PYRIDOXINE HYDROCHLORIDE\RIBOFLAVIN 5^-PHOSPHATE SODIUM\THIAMINE HYDROCHLORIDE\VITAMIN B COMPLEX
     Dosage: UNK
     Dates: start: 20200131
  2. TAMSULOSIN [Concomitant]
     Active Substance: TAMSULOSIN
     Dosage: UNK
     Dates: start: 2009
  3. POTASSIUM CHLORIDE. [Concomitant]
     Active Substance: POTASSIUM CHLORIDE
     Dosage: UNK
     Dates: start: 201705
  4. LASIX [Concomitant]
     Active Substance: FUROSEMIDE
     Dosage: UNK
     Dates: start: 20210120
  5. NITROGLYCERIN. [Suspect]
     Active Substance: NITROGLYCERIN
     Dosage: UNK
  6. PROTONIX [Suspect]
     Active Substance: PANTOPRAZOLE SODIUM
     Dosage: UNK
     Route: 041
     Dates: start: 20210310, end: 20210312
  7. HUMALOG [Suspect]
     Active Substance: INSULIN LISPRO
     Indication: TYPE 2 DIABETES MELLITUS
     Dosage: 4 IU
     Route: 058
     Dates: start: 20200729
  8. PROAIR HFA [Concomitant]
     Active Substance: ALBUTEROL SULFATE
     Dosage: UNK
     Dates: start: 2015
  9. VANTIN [Suspect]
     Active Substance: CEFPODOXIME PROXETIL
     Dosage: UNK
  10. LANTUS [Suspect]
     Active Substance: INSULIN GLARGINE
     Indication: TYPE 2 DIABETES MELLITUS
     Dosage: 13 IU
     Route: 058
     Dates: start: 20210118
  11. LANTUS [Suspect]
     Active Substance: INSULIN GLARGINE
     Dosage: 25 IU, 2X/DAY
     Route: 058
     Dates: start: 20210310
  12. SELONSERTIB [Suspect]
     Active Substance: SELONSERTIB
     Indication: RENAL DISORDER
     Dosage: 18 MG, 1X/DAY
     Route: 048
     Dates: start: 20191226, end: 20200122
  13. INSULIN [Suspect]
     Active Substance: INSULIN NOS
     Indication: DIABETES MELLITUS
     Dosage: UNK
     Dates: start: 20210310
  14. HYDRALAZINE [Concomitant]
     Active Substance: HYDRALAZINE HYDROCHLORIDE
     Dosage: UNK
  15. AUGMENTIN [Concomitant]
     Active Substance: AMOXICILLIN\CLAVULANATE POTASSIUM
     Dosage: UNK
     Dates: start: 20210120
  16. OMNICEF [Suspect]
     Active Substance: CEFDINIR
     Indication: URINARY TRACT INFECTION
     Route: 048
     Dates: start: 202103
  17. ASPIRIN. [Concomitant]
     Active Substance: ASPIRIN
     Dosage: UNK
     Dates: start: 201705
  18. ALLOPURINOL. [Concomitant]
     Active Substance: ALLOPURINOL
     Dosage: UNK
     Dates: start: 20200325
  19. PROTONIX [Suspect]
     Active Substance: PANTOPRAZOLE SODIUM
     Dosage: UNK
     Route: 048
     Dates: start: 20210312
  20. ROCEPHINE [Suspect]
     Active Substance: CEFTRIAXONE SODIUM
     Indication: PYELONEPHRITIS
     Dosage: UNK (IV NOS)
     Route: 042
  21. HUMALOG [Suspect]
     Active Substance: INSULIN LISPRO
     Dosage: UNK
     Route: 058
     Dates: start: 20210310
  22. BRILINTA [Concomitant]
     Active Substance: TICAGRELOR
     Dosage: UNK
     Dates: start: 201907
  23. EQUATE NIGHTTIME SLEEP AID [Concomitant]
     Active Substance: DIPHENHYDRAMINE HYDROCHLORIDE
     Dosage: UNK
     Dates: start: 201907
  24. CARVEDILOL. [Concomitant]
     Active Substance: CARVEDILOL
     Dosage: UNK
     Dates: start: 201705
  25. NITROSTAT [Concomitant]
     Active Substance: NITROGLYCERIN
     Dosage: UNK
     Dates: start: 201705
  26. TYLENOL [Concomitant]
     Active Substance: ACETAMINOPHEN
     Dosage: UNK
     Dates: start: 2015

REACTIONS (12)
  - Pyelonephritis [Unknown]
  - Inappropriate schedule of product administration [Unknown]
  - Large intestine polyp [Unknown]
  - Acute myocardial infarction [Unknown]
  - Escherichia urinary tract infection [Unknown]
  - Back pain [Unknown]
  - Diabetes mellitus inadequate control [Unknown]
  - Gastrointestinal haemorrhage [Unknown]
  - Hiatus hernia [Unknown]
  - Arteriovenous malformation [Unknown]
  - Urosepsis [Unknown]
  - Chills [Unknown]

NARRATIVE: CASE EVENT DATE: 20210226
